FAERS Safety Report 8274703-5 (Version None)
Quarter: 2012Q2

REPORT INFORMATION
  Report Type: 
  Country: None (occurrence: None)
  Receive Date: 20120409
  Receipt Date: 20120322
  Transmission Date: 20120825
  Serious: Yes (Death)
  Sender: FDA-Public Use
  Company Number: 2012MA003954

PATIENT

DRUGS (1)
  1. VENLAFAXINE HCL [Suspect]
     Indication: OVERDOSE

REACTIONS (2)
  - INTENTIONAL OVERDOSE [None]
  - INFECTIOUS PERITONITIS [None]
